FAERS Safety Report 25172563 (Version 3)
Quarter: 2025Q2

REPORT INFORMATION
  Report Type: Spontaneous
  Country: JP (occurrence: JP)
  Receive Date: 20250408
  Receipt Date: 20250521
  Transmission Date: 20250716
  Serious: Yes (Hospitalization, Other)
  Sender: PFIZER
  Company Number: JP-MLMSERVICE-20250326-PI457356-00214-1

PATIENT
  Age: 80 Year
  Sex: Male

DRUGS (2)
  1. MEROPENEM [Suspect]
     Active Substance: MEROPENEM
     Indication: Cholangitis
     Dosage: 2 G, EVERY 12 HOURS
     Route: 042
  2. CEFMETAZOLE [Suspect]
     Active Substance: CEFMETAZOLE
     Indication: Escherichia infection
     Dosage: 1 G, EVERY 8 H
     Route: 042

REACTIONS (1)
  - Device related sepsis [Recovered/Resolved]
